FAERS Safety Report 5882213-5 (Version None)
Quarter: 2008Q3

REPORT INFORMATION
  Report Type: 
  Country: None (occurrence: None)
  Receive Date: 20080912
  Receipt Date: 20080728
  Transmission Date: 20090109
  Serious: No
  Sender: FDA-Public Use
  Company Number: US-ABBOTT-08P-163-0466159-00

PATIENT
  Sex: Female
  Weight: 101.24 kg

DRUGS (3)
  1. HUMIRA [Suspect]
     Indication: RHEUMATOID ARTHRITIS
     Route: 058
     Dates: start: 20080501
  2. METHOTREXATE [Concomitant]
     Indication: RHEUMATOID ARTHRITIS
     Dosage: 6 TABLETS Q WEEK
     Route: 048
     Dates: start: 20060101
  3. PREGABALIN [Concomitant]
     Indication: FIBROMYALGIA
     Route: 048
     Dates: start: 20060101

REACTIONS (1)
  - INJECTION SITE PAIN [None]
